FAERS Safety Report 4853654-X (Version None)
Quarter: 2005Q4

REPORT INFORMATION
  Report Type: 
  Country: None (occurrence: None)
  Receive Date: 20051212
  Receipt Date: 20051205
  Transmission Date: 20060501
  Serious: Yes (Other)
  Sender: FDA-Public Use
  Company Number: S05-FRA-05603-01

PATIENT
  Sex: Female

DRUGS (1)
  1. PROPESS ^FERRING^ (DINOPROSTONE) [Suspect]
     Indication: OBSTETRICAL PROCEDURE
     Dosage: 10 MG ONCE VG
     Route: 067
     Dates: start: 20050101, end: 20050101

REACTIONS (2)
  - OBSTETRIC PROCEDURE COMPLICATION [None]
  - UTERINE RUPTURE [None]
